FAERS Safety Report 17894190 (Version 5)
Quarter: 2022Q3

REPORT INFORMATION
  Report Type: Spontaneous
  Country: JP (occurrence: JP)
  Receive Date: 20200615
  Receipt Date: 20220713
  Transmission Date: 20221026
  Serious: Yes (Hospitalization, Other)
  Sender: FDA-Public Use
  Company Number: JP-GSKJP-JP2020JPN096534AA

PATIENT

DRUGS (9)
  1. LAMICTAL [Suspect]
     Active Substance: LAMOTRIGINE
     Indication: Epilepsy
     Dosage: 50 MG, QD
     Route: 048
     Dates: start: 20200324, end: 20200414
  2. LAMICTAL [Suspect]
     Active Substance: LAMOTRIGINE
     Dosage: 75 MG, QD
     Route: 048
     Dates: start: 20200415, end: 20200424
  3. PRAVASTATIN SODIUM [Concomitant]
     Active Substance: PRAVASTATIN SODIUM
     Indication: Hyperlipidaemia
     Dosage: 10 MG, 1D
     Route: 048
     Dates: end: 20200428
  4. NEXIUM [Concomitant]
     Active Substance: ESOMEPRAZOLE MAGNESIUM
     Indication: Gastrooesophageal reflux disease
     Dosage: 20 MG, 1D
     Route: 048
     Dates: end: 20200428
  5. ETHYL LOFLAZEPATE [Concomitant]
     Active Substance: ETHYL LOFLAZEPATE
     Indication: Somatic symptom disorder
     Dosage: 1 MG, 1D
     Route: 048
     Dates: end: 20200428
  6. LEXAPRO TABLETS (ESCITALOPRAM OXALATE) [Concomitant]
     Indication: Depression
     Dosage: 20 MG, 1D
     Route: 048
     Dates: end: 20200428
  7. ZOLPIDEM TARTRATE [Concomitant]
     Active Substance: ZOLPIDEM TARTRATE
     Indication: Insomnia
     Dosage: 5 MG, 1D
     Route: 048
     Dates: end: 20200428
  8. ESFLURBIPROFEN\HERBALS [Concomitant]
     Active Substance: ESFLURBIPROFEN\HERBALS
     Dosage: UNK
     Route: 061
  9. IBUPROFEN [Concomitant]
     Active Substance: IBUPROFEN
     Dosage: UNK UNK, SINGLE
     Dates: start: 202004, end: 202004

REACTIONS (11)
  - Drug reaction with eosinophilia and systemic symptoms [Recovering/Resolving]
  - Rash papular [Recovering/Resolving]
  - Lymphadenopathy [Recovering/Resolving]
  - Pyrexia [Unknown]
  - Pruritus [Recovering/Resolving]
  - Erythema [Recovering/Resolving]
  - Eosinophil count increased [Unknown]
  - White blood cell count increased [Unknown]
  - Prescribed overdose [Unknown]
  - Product use issue [Unknown]
  - Off label use [Unknown]

NARRATIVE: CASE EVENT DATE: 20200324
